FAERS Safety Report 14145831 (Version 3)
Quarter: 2018Q1

REPORT INFORMATION
  Report Type: Report from Study
  Country: FR (occurrence: FR)
  Receive Date: 20171031
  Receipt Date: 20180125
  Transmission Date: 20180508
  Serious: Yes (Life-Threatening, Hospitalization, Other)
  Sender: FDA-Public Use
  Company Number: PHHY2017FR139873

PATIENT
  Age: 14 Year
  Sex: Female
  Weight: 36 kg

DRUGS (4)
  1. DOXORUBICINE [Concomitant]
     Active Substance: DOXORUBICIN
     Indication: ACUTE LYMPHOCYTIC LEUKAEMIA
     Dosage: 38 MG, UNK
     Route: 065
     Dates: start: 20170914, end: 20170914
  2. METHOTREXATE. [Concomitant]
     Active Substance: METHOTREXATE
     Indication: ACUTE LYMPHOCYTIC LEUKAEMIA
     Dosage: 12 MG, UNK
     Route: 065
     Dates: start: 20170914, end: 20170914
  3. VINCRISTINE [Concomitant]
     Active Substance: VINCRISTINE
     Indication: ACUTE LYMPHOCYTIC LEUKAEMIA
     Dosage: 1.9 MG, UNK
     Route: 065
     Dates: start: 20170914
  4. GLIVEC [Suspect]
     Active Substance: IMATINIB MESYLATE
     Indication: ACUTE LYMPHOCYTIC LEUKAEMIA
     Dosage: 400 MG, QD
     Route: 048
     Dates: start: 20170213

REACTIONS (21)
  - Seizure [Recovered/Resolved]
  - Diastolic hypertension [Unknown]
  - Petechiae [Unknown]
  - Hypertension [Recovered/Resolved]
  - Posterior reversible encephalopathy syndrome [Recovered/Resolved]
  - Somnolence [Recovering/Resolving]
  - Abdominal pain [Unknown]
  - Cardiac index increased [Unknown]
  - Hypothermia [Recovered/Resolved]
  - Abdominal rigidity [Unknown]
  - Vomiting [Unknown]
  - Oedema [Unknown]
  - Immune reconstitution inflammatory syndrome [Recovering/Resolving]
  - Bone marrow failure [Recovered/Resolved]
  - Hypoalbuminaemia [Unknown]
  - Enteritis [Recovered/Resolved]
  - Thrombocytopenia [Recovered/Resolved]
  - Tachycardia [Recovered/Resolved]
  - Hypokalaemia [Recovered/Resolved]
  - Sinus tachycardia [Unknown]
  - Diarrhoea [Unknown]

NARRATIVE: CASE EVENT DATE: 20170912
